FAERS Safety Report 6377796-5 (Version None)
Quarter: 2009Q3

REPORT INFORMATION
  Report Type: 
  Country: None (occurrence: None)
  Receive Date: 20090925
  Receipt Date: 20090922
  Transmission Date: 20100115
  Serious: Yes (Other)
  Sender: FDA-Public Use
  Company Number: ES-PFIZER INC-2009252838

PATIENT
  Age: 79 Year

DRUGS (5)
  1. PHENYTOIN SODIUM CAP [Suspect]
     Dosage: UNK MG, 3X/DAY
  2. VALPROATE SODIUM [Concomitant]
     Dosage: 500 MG, 3X/DAY
  3. NORVASC [Concomitant]
  4. CARDYL [Concomitant]
  5. RISPERDAL [Concomitant]

REACTIONS (2)
  - ANTICONVULSANT DRUG LEVEL DECREASED [None]
  - DRUG INEFFECTIVE [None]
